FAERS Safety Report 14252558 (Version 1)
Quarter: 2017Q4

REPORT INFORMATION
  Report Type: Report from Study
  Country: DE (occurrence: DE)
  Receive Date: 20171205
  Receipt Date: 20171205
  Transmission Date: 20180321
  Serious: Yes (Hospitalization)
  Sender: FDA-Public Use
  Company Number: DE-TEVA-2017-DE-828711

PATIENT
  Age: 50 Year
  Sex: Female

DRUGS (1)
  1. COPAXONE [Suspect]
     Active Substance: GLATIRAMER ACETATE
     Indication: MULTIPLE SCLEROSIS
     Dates: start: 20170101, end: 2017

REACTIONS (3)
  - Pain [Recovered/Resolved]
  - Lymphadenitis [Recovered/Resolved]
  - Axillary pain [Recovered/Resolved]

NARRATIVE: CASE EVENT DATE: 201704
